FAERS Safety Report 7267242-1 (Version None)
Quarter: 2011Q1

REPORT INFORMATION
  Report Type: 
  Country: None (occurrence: None)
  Receive Date: 20110201
  Receipt Date: 20110118
  Transmission Date: 20110831
  Serious: Yes (Other)
  Sender: FDA-Public Use
  Company Number: US-CELGENEUS-163-21880-11012234

PATIENT
  Sex: Male

DRUGS (2)
  1. REVLIMID [Suspect]
     Indication: MULTIPLE MYELOMA
     Route: 048
     Dates: start: 20100501
  2. REVLIMID [Suspect]
     Route: 048
     Dates: start: 20101201

REACTIONS (3)
  - ANAEMIA [None]
  - TESTICULAR INJURY [None]
  - CONSTIPATION [None]
